FAERS Safety Report 7022824-7 (Version None)
Quarter: 2010Q3

REPORT INFORMATION
  Report Type: 
  Country: None (occurrence: None)
  Receive Date: 20100930
  Receipt Date: 20100921
  Transmission Date: 20110219
  Serious: Yes (Hospitalization)
  Sender: FDA-Public Use
  Company Number: B0665753A

PATIENT
  Sex: Female

DRUGS (4)
  1. LAMICTAL [Suspect]
     Indication: BIPOLAR II DISORDER
     Dosage: 50MG PER DAY
     Route: 048
     Dates: start: 20100611, end: 20100704
  2. SUMATRIPTAN SUCCINATE [Suspect]
     Indication: MIGRAINE
     Route: 048
     Dates: start: 20100611, end: 20100707
  3. LIMAS [Concomitant]
     Indication: BIPOLAR II DISORDER
     Dosage: 1600MG PER DAY
     Route: 048
  4. LENDORMIN [Concomitant]
     Indication: INSOMNIA
     Dosage: .25MG PER DAY
     Route: 048

REACTIONS (10)
  - BLOOD LACTATE DEHYDROGENASE INCREASED [None]
  - DRUG ERUPTION [None]
  - EOSINOPHIL PERCENTAGE INCREASED [None]
  - ERYTHEMA MULTIFORME [None]
  - FACE OEDEMA [None]
  - LYMPHADENOPATHY [None]
  - NAUSEA [None]
  - PRURITUS [None]
  - PYREXIA [None]
  - SKIN FISSURES [None]
